FAERS Safety Report 4725936-3 (Version None)
Quarter: 2005Q3

REPORT INFORMATION
  Report Type: 
  Country: None (occurrence: None)
  Receive Date: 20050727
  Receipt Date: 20050526
  Transmission Date: 20060218
  Serious: Yes (Other)
  Sender: FDA-Public Use
  Company Number: US-GLAXOSMITHKLINE-A0560272A

PATIENT
  Age: 25 Year
  Sex: Male

DRUGS (9)
  1. PAXIL CR [Suspect]
     Indication: DEPRESSION
     Dosage: 25MG PER DAY
     Route: 048
  2. PAXIL [Suspect]
     Indication: DEPRESSION
     Route: 048
  3. PAROXETINE HCL [Suspect]
     Indication: DEPRESSION
     Dosage: 5MG PER DAY
     Route: 048
  4. INSULIN [Concomitant]
  5. LIPITOR [Concomitant]
  6. ASPIRIN [Concomitant]
  7. VITAMIN CAP [Concomitant]
  8. LANTUS [Concomitant]
  9. HUMALOG [Concomitant]

REACTIONS (7)
  - ARRHYTHMIA [None]
  - CHEST PAIN [None]
  - DRUG ADMINISTRATION ERROR [None]
  - HYPERCHOLESTEROLAEMIA [None]
  - HYPOAESTHESIA [None]
  - LIVER FUNCTION TEST ABNORMAL [None]
  - WEIGHT INCREASED [None]
